FAERS Safety Report 17778487 (Version 4)
Quarter: 2020Q3

REPORT INFORMATION
  Report Type: Report from Study
  Country: US (occurrence: US)
  Receive Date: 20200513
  Receipt Date: 20200727
  Transmission Date: 20201102
  Serious: Yes (Other)
  Sender: FDA-Public Use
  Company Number: US-ROCHE-2585117

PATIENT
  Age: 57 Year
  Sex: Male
  Weight: 95 kg

DRUGS (19)
  1. BIVALIRUDIN. [Concomitant]
     Active Substance: BIVALIRUDIN
     Dosage: ANTICOAGULATION FOR HEPARIN?INDUCED THROMBOCYTOPENIA (HIT)
     Dates: start: 20200404, end: 20200425
  2. DEXMEDETOMIDINE. [Concomitant]
     Active Substance: DEXMEDETOMIDINE
     Dosage: SEDATION FOR INTUBATED AND MECHANICALLY VENTILATED PATIENTS
     Dates: start: 20200407
  3. MEROPENEM. [Concomitant]
     Active Substance: MEROPENEM
     Dosage: SUSPECTED INFECTION FEVER SHIVERING LEUKOCYTOSIS
     Dates: start: 20200427, end: 20200430
  4. DAPTOMYCIN. [Concomitant]
     Active Substance: DAPTOMYCIN
     Indication: INFECTION
     Dates: start: 20200501
  5. AZITHROMYCIN ANHYDROUS. [Concomitant]
     Active Substance: AZITHROMYCIN ANHYDROUS
     Indication: COVID-19
     Dates: start: 20200403, end: 20200404
  6. PLAQUENIL [Concomitant]
     Active Substance: HYDROXYCHLOROQUINE SULFATE
     Indication: COVID-19
     Dates: start: 20200403, end: 20200404
  7. DIAZEPAM. [Concomitant]
     Active Substance: DIAZEPAM
     Indication: AGITATION
     Dates: start: 20200423
  8. NOREPINEPHRINE. [Concomitant]
     Active Substance: NOREPINEPHRINE
     Indication: SEPTIC SHOCK
     Dates: start: 20200402, end: 20200404
  9. VASOPRESSIN. [Concomitant]
     Active Substance: VASOPRESSIN
     Indication: SEPTIC SHOCK
     Dosage: DOSE: 0.5 U
     Dates: start: 20200403, end: 20200409
  10. VANCOMYCIN [Concomitant]
     Active Substance: VANCOMYCIN
     Indication: PNEUMONIA
     Dates: start: 20200405, end: 20200414
  11. ACETAMINOPHEN. [Concomitant]
     Active Substance: ACETAMINOPHEN
     Indication: PYREXIA
     Dates: start: 20200403
  12. HEPARIN [Concomitant]
     Active Substance: HEPARIN SODIUM
     Dosage: DIALYSIS FILTER CLOTTING, DOSE: 1100 UNIT
     Dates: start: 20200425
  13. MIDAZOLAM. [Concomitant]
     Active Substance: MIDAZOLAM
     Dosage: FOR SEDATION
     Dates: start: 20200406
  14. ALLOPURINOL. [Concomitant]
     Active Substance: ALLOPURINOL
     Indication: GOUT
     Dates: end: 20200409
  15. CEFEPIME [Concomitant]
     Active Substance: CEFEPIME HYDROCHLORIDE
     Dosage: EMPIRIC FOR FEVER OF UNKNOWN ORIGIN SECONDARY TO SUSPECTED INFECTION
     Dates: start: 20200411, end: 20200414
  16. TOCILIZUMAB. [Suspect]
     Active Substance: TOCILIZUMAB
     Indication: COVID-19 PNEUMONIA
     Dosage: FREQUENCY: ONCE?DATE OF MOST RECENT DOSE OF TOCILIZUMAB PRIOR TO AE ONSET AT 13.21 AND SAE ONSET AT
     Route: 042
     Dates: start: 20200404
  17. CEFTRIAXONE. [Concomitant]
     Active Substance: CEFTRIAXONE
     Indication: PNEUMONIA
     Dates: start: 20200414, end: 20200418
  18. HYDROMORPHONE [Concomitant]
     Active Substance: HYDROMORPHONE
     Dosage: FOR SEDATION
     Dates: start: 20200402
  19. PANTOPRAZOLE [Concomitant]
     Active Substance: PANTOPRAZOLE
     Dosage: GASTRIC ULCER PROPHYLAXIS
     Dates: start: 20200402

REACTIONS (2)
  - Pneumonia escherichia [Recovered/Resolved]
  - Staphylococcus test positive [Recovered/Resolved]

NARRATIVE: CASE EVENT DATE: 20200412
